FAERS Safety Report 20611558 (Version 1)
Quarter: 2022Q1

REPORT INFORMATION
  Report Type: Spontaneous
  Country: US (occurrence: US)
  Receive Date: 20220318
  Receipt Date: 20220318
  Transmission Date: 20220423
  Serious: Yes (Other)
  Sender: FDA-Public Use
  Company Number: US-PFIZER INC-2020074932

PATIENT
  Age: 57 Year
  Sex: Female
  Weight: 72.57 kg

DRUGS (3)
  1. SOMATROPIN [Suspect]
     Active Substance: SOMATROPIN
     Indication: Growth hormone deficiency
     Dosage: 1 MG, ONCE DAILY
     Dates: start: 202002
  2. SOMATROPIN [Suspect]
     Active Substance: SOMATROPIN
     Dosage: 1 MG, ONCE DAILY
     Dates: start: 202002
  3. SOMATROPIN [Suspect]
     Active Substance: SOMATROPIN
     Dosage: 1 MG

REACTIONS (9)
  - Fall [Unknown]
  - Ligament rupture [Unknown]
  - Muscle rupture [Unknown]
  - Product prescribing issue [Unknown]
  - Product physical issue [Unknown]
  - Product dose omission issue [Unknown]
  - Memory impairment [Unknown]
  - Device leakage [Unknown]
  - Drug dose omission by device [Unknown]

NARRATIVE: CASE EVENT DATE: 20200101
